FAERS Safety Report 12744063 (Version 3)
Quarter: 2016Q4

REPORT INFORMATION
  Report Type: Spontaneous
  Country: TR (occurrence: TR)
  Receive Date: 20160914
  Receipt Date: 20161003
  Transmission Date: 20170207
  Serious: Yes (Hospitalization, Other)
  Sender: FDA-Public Use
  Company Number: TR-GILEAD-2016-0233024

PATIENT
  Age: 62 Year
  Sex: Male

DRUGS (2)
  1. PROGRAF [Concomitant]
     Active Substance: TACROLIMUS\TACROLIMUS ANHYDROUS
  2. HARVONI [Suspect]
     Active Substance: LEDIPASVIR\SOFOSBUVIR
     Indication: HEPATITIS C
     Dosage: UNK
     Route: 065
     Dates: start: 201608

REACTIONS (10)
  - Vomiting [Recovered/Resolved]
  - Hypotension [Unknown]
  - Blood magnesium decreased [Recovered/Resolved]
  - Pain [Unknown]
  - Acute kidney injury [Recovered/Resolved]
  - Renal tubular necrosis [Recovered/Resolved]
  - Syncope [Unknown]
  - Diarrhoea [Recovered/Resolved]
  - Escherichia urinary tract infection [Recovered/Resolved]
  - Blood potassium decreased [Recovered/Resolved]

NARRATIVE: CASE EVENT DATE: 20160908
